FAERS Safety Report 7657525-5 (Version None)
Quarter: 2011Q3

REPORT INFORMATION
  Report Type: 
  Country: None (occurrence: None)
  Receive Date: 20110804
  Receipt Date: 20110726
  Transmission Date: 20111222
  Serious: Yes (Hospitalization, Other)
  Sender: FDA-Public Use
  Company Number: FR-AMGEN-FRASP2011038518

PATIENT
  Age: 58 Year
  Sex: Female

DRUGS (8)
  1. TOPALGIC                           /00599202/ [Concomitant]
     Dosage: UNK
  2. LEVOTHYROXINE SODIUM [Concomitant]
     Dosage: UNK
  3. ACETAMINOPHEN [Concomitant]
     Dosage: UNK
  4. NEXIUM [Concomitant]
     Dosage: UNK
  5. ENBREL [Suspect]
     Dosage: UNK
     Route: 058
     Dates: end: 20100727
  6. ENBREL [Suspect]
     Dosage: UNK
     Dates: start: 20110419
  7. ENBREL [Suspect]
     Indication: RHEUMATOID ARTHRITIS
     Dosage: UNK
     Route: 058
     Dates: start: 20040624, end: 20100201
  8. PIASCLEDINE                        /01305801/ [Concomitant]
     Dosage: UNK

REACTIONS (2)
  - IDIOPATHIC THROMBOCYTOPENIC PURPURA [None]
  - HIP ARTHROPLASTY [None]
